FAERS Safety Report 4785413-0 (Version None)
Quarter: 2005Q3

REPORT INFORMATION
  Report Type: 
  Country: None (occurrence: None)
  Receive Date: 20050929
  Receipt Date: 20050916
  Transmission Date: 20060218
  Serious: Yes (Other)
  Sender: FDA-Public Use
  Company Number: 2005119477

PATIENT
  Sex: Male
  Weight: 106.5953 kg

DRUGS (8)
  1. DETROL LA [Suspect]
     Indication: HYPERTONIC BLADDER
     Dosage: 2 MG (2 MG, 1 IN 1 D), ORAL
     Route: 048
     Dates: start: 20000309, end: 20031024
  2. DETROL [Suspect]
     Indication: POLLAKIURIA
     Dosage: 4 MG (2 MG, BID), ORAL
     Route: 048
  3. AVANDIA [Concomitant]
  4. TENORMIN [Suspect]
  5. ACETYSLAICYLIC ACID (ACETYSLAICYLIC ACID) [Concomitant]
  6. MACRODANTIN [Concomitant]
  7. CARDURA [Concomitant]
  8. TRAZODONE (TAZODONE) [Concomitant]

REACTIONS (11)
  - BLADDER SPASM [None]
  - CONDITION AGGRAVATED [None]
  - DRY MOUTH [None]
  - ERECTILE DYSFUNCTION [None]
  - INAPPROPRIATE SCHEDULE OF DRUG ADMINISTRATION [None]
  - INCONTINENCE [None]
  - INCORRECT DOSE ADMINISTERED [None]
  - POST PROCEDURAL COMPLICATION [None]
  - PROSTATIC OPERATION [None]
  - SLEEP DISORDER [None]
  - VISION BLURRED [None]
